FAERS Safety Report 7197037-9 (Version None)
Quarter: 2010Q4

REPORT INFORMATION
  Report Type: 
  Country: None (occurrence: None)
  Receive Date: 20101224
  Receipt Date: 20101217
  Transmission Date: 20110411
  Serious: Yes (Other)
  Sender: FDA-Public Use
  Company Number: PHHY2010BR87054

PATIENT
  Sex: Female

DRUGS (2)
  1. FORASEQ [Suspect]
     Dosage: UNK
     Route: 048
  2. FORASEQ [Suspect]
     Dosage: UNK

REACTIONS (2)
  - BRONCHITIS [None]
  - SURGERY [None]
